FAERS Safety Report 5415608-4 (Version None)
Quarter: 2007Q3

REPORT INFORMATION
  Report Type: 
  Country: None (occurrence: None)
  Receive Date: 20070713
  Receipt Date: 20070308
  Transmission Date: 20080115
  Serious: Yes (Hospitalization)
  Sender: FDA-Public Use
  Company Number: US-JNJFOC-20060904269

PATIENT
  Age: 19 Year
  Sex: Female
  Weight: 77 kg

DRUGS (2)
  1. ORTHO EVRA [Suspect]
     Indication: CONTRACEPTION
     Dosage: TRANSDERMAL
     Route: 062
     Dates: start: 20040501, end: 20041001
  2. IBUPROFEN [Concomitant]

REACTIONS (1)
  - PULMONARY EMBOLISM [None]
